FAERS Safety Report 7141238-2 (Version None)
Quarter: 2010Q4

REPORT INFORMATION
  Report Type: 
  Country: None (occurrence: None)
  Receive Date: 20101122
  Receipt Date: 20101108
  Transmission Date: 20110411
  Serious: Yes (Death, Hospitalization, Other)
  Sender: FDA-Public Use
  Company Number: 1000016077

PATIENT
  Age: 56 Year
  Sex: Male
  Weight: 53 kg

DRUGS (9)
  1. CITALOPRAM HYDROBROMIDE [Suspect]
     Indication: DEPRESSION
     Dosage: 20 MG (20 MG, 1 IN 1 D);
  2. MADOPAR (MADOPAR) [Suspect]
     Indication: PARKINSON'S DISEASE
     Dosage: 187.5 MG (62.5 MG, 3 IN 1 D); 375 MG (125 MG, 3 IN 1 D)
     Dates: start: 20050101
  3. MADOPAR (MADOPAR) [Suspect]
     Indication: PARKINSON'S DISEASE
     Dosage: 187.5 MG (62.5 MG, 3 IN 1 D); 375 MG (125 MG, 3 IN 1 D)
     Dates: start: 20090301
  4. MADOPAR CR (MADOPAR) [Suspect]
     Indication: PARKINSON'S DISEASE
     Dosage: 125 MG (125 MG, 1 IN 1 D),
  5. PRAMIPEXOLE DIHYDROCHLORIDE [Suspect]
     Indication: PARKINSON'S DISEASE
     Dates: start: 20090101, end: 20090801
  6. AMITRIPTYLINE HYDROCHLORIDE [Suspect]
     Indication: PSYCHOTIC DISORDER
     Dosage: 70 TABLETS
     Dates: start: 20090812, end: 20090812
  7. AMITRIPTYLINE HYDROCHLORIDE [Suspect]
     Indication: PSYCHOTIC DISORDER
     Dosage: 70 TABLETS
     Dates: start: 20090810
  8. CLOZAPINE [Concomitant]
  9. DIAZEPAM [Concomitant]

REACTIONS (10)
  - ACUTE PSYCHOSIS [None]
  - AGGRESSION [None]
  - ANXIETY [None]
  - ASPHYXIA [None]
  - COMPLETED SUICIDE [None]
  - DELUSION [None]
  - DEPRESSION [None]
  - OVERDOSE [None]
  - PARANOIA [None]
  - PRESYNCOPE [None]
